FAERS Safety Report 13315696 (Version 1)
Quarter: 2017Q1

REPORT INFORMATION
  Report Type: Spontaneous
  Country: US (occurrence: US)
  Receive Date: 20170310
  Receipt Date: 20170310
  Transmission Date: 20170428
  Serious: Yes (Hospitalization)
  Sender: FDA-Public Use
  Company Number: US-ROCHE-1903504

PATIENT
  Sex: Female

DRUGS (15)
  1. HYDROXYZINE HCL [Concomitant]
     Active Substance: HYDROXYZINE HYDROCHLORIDE
     Route: 065
  2. MONTELUKAST [Concomitant]
     Active Substance: MONTELUKAST SODIUM
     Route: 065
  3. SYNTHROID [Concomitant]
     Active Substance: LEVOTHYROXINE SODIUM
     Route: 065
  4. RANITIDINE. [Concomitant]
     Active Substance: RANITIDINE
     Route: 065
  5. IPRATROPIUM + SALBUTAMOL [Concomitant]
     Dosage: IPRATROPIUM/ SOL ALBUTER
     Route: 065
  6. LEVALBUTEROL. [Concomitant]
     Active Substance: LEVALBUTEROL
     Dosage: LEVALBUTEROL NEB
     Route: 065
  7. METHYLPREDNISOLONE. [Concomitant]
     Active Substance: METHYLPREDNISOLONE
     Route: 065
  8. BUPROPION HCL [Concomitant]
     Active Substance: BUPROPION HYDROCHLORIDE
     Dosage: XL
     Route: 065
  9. IPRATROPIUM [Concomitant]
     Active Substance: IPRATROPIUM
     Dosage: IPRATROPIUM SOL INH
     Route: 065
  10. XOLAIR [Suspect]
     Active Substance: OMALIZUMAB
     Indication: ASTHMA
     Dosage: INJECT 375MG SUBCUTANEOUSLY EVERY 2 WEEKS
     Route: 058
  11. ALPRAZOLAM. [Concomitant]
     Active Substance: ALPRAZOLAM
     Route: 065
  12. VENTOLIN HFA ALBUTEROL SULFATE [Concomitant]
     Dosage: VENTOLIN HFA AER
     Route: 065
  13. BUSPIRONE [Concomitant]
     Active Substance: BUSPIRONE HYDROCHLORIDE
     Route: 065
  14. FLUTICASONE. [Concomitant]
     Active Substance: FLUTICASONE
     Dosage: FLUTICASONE SPR
     Route: 065
  15. XOPENEX HFA [Concomitant]
     Active Substance: LEVALBUTEROL TARTRATE
     Dosage: XOPENEX HFA AER
     Route: 065

REACTIONS (1)
  - Herpes zoster [Not Recovered/Not Resolved]
